FAERS Safety Report 18214092 (Version 1)
Quarter: 2020Q3

REPORT INFORMATION
  Report Type: Spontaneous
  Country: FR (occurrence: FR)
  Receive Date: 20200831
  Receipt Date: 20200831
  Transmission Date: 20201103
  Serious: Yes (Other)
  Sender: FDA-Public Use
  Company Number: FR-PFIZER INC-2020335001

PATIENT
  Age: 26 Year
  Sex: Female

DRUGS (2)
  1. PANTOPRAZOLE [Suspect]
     Active Substance: PANTOPRAZOLE
     Indication: GASTRITIS
     Dosage: UNK UNK, QD
     Route: 048
     Dates: start: 20180719, end: 20180724
  2. JASMINELLE [Concomitant]
     Active Substance: DROSPIRENONE
     Dosage: UNK

REACTIONS (4)
  - Urticaria [Recovered/Resolved]
  - Dysphagia [Recovered/Resolved]
  - Face oedema [Recovered/Resolved]
  - Pruritus [Recovered/Resolved]

NARRATIVE: CASE EVENT DATE: 20180724
